FAERS Safety Report 12893040 (Version 3)
Quarter: 2016Q4

REPORT INFORMATION
  Report Type: Report from Study
  Country: IT (occurrence: IT)
  Receive Date: 20161028
  Receipt Date: 20161122
  Transmission Date: 20170207
  Serious: Yes (Hospitalization)
  Sender: FDA-Public Use
  Company Number: IT-BRISTOL-MYERS SQUIBB COMPANY-BMS-2016-089276

PATIENT
  Age: 64 Year
  Sex: Female

DRUGS (1)
  1. NIVOLUMAB [Suspect]
     Active Substance: NIVOLUMAB
     Indication: NON-SMALL CELL LUNG CANCER
     Dosage: 3 MG/KG, UNK
     Route: 042
     Dates: start: 20150806, end: 20160818

REACTIONS (16)
  - Oedema [Unknown]
  - Asthenia [Unknown]
  - Arthritis [Unknown]
  - Amylase increased [Unknown]
  - Lipase increased [Unknown]
  - Diarrhoea [Unknown]
  - Lymphatic disorder [Unknown]
  - Pruritus [Recovered/Resolved]
  - Pyrexia [Not Recovered/Not Resolved]
  - Oedema peripheral [Unknown]
  - Vomiting [Not Recovered/Not Resolved]
  - Mucosal inflammation [Unknown]
  - Oliguria [Unknown]
  - Weight increased [Unknown]
  - Constipation [Unknown]
  - Rash erythematous [Recovered/Resolved]

NARRATIVE: CASE EVENT DATE: 20150807
